FAERS Safety Report 19671919 (Version 1)
Quarter: 2021Q3

REPORT INFORMATION
  Report Type: Report from Study
  Country: None (occurrence: DE)
  Receive Date: 20210806
  Receipt Date: 20210806
  Transmission Date: 20211014
  Serious: Yes (Death)
  Sender: FDA-Public Use
  Company Number: DE-ABBVIE-21K-062-4028755-00

PATIENT
  Age: 81 Year
  Sex: Male

DRUGS (6)
  1. HUMIRA [Suspect]
     Active Substance: ADALIMUMAB
     Indication: RHEUMATOID ARTHRITIS
     Route: 058
     Dates: start: 201305, end: 201308
  2. ENBREL [Concomitant]
     Active Substance: ETANERCEPT
     Indication: PRODUCT USED FOR UNKNOWN INDICATION
     Dates: start: 201308, end: 201310
  3. AZA [Concomitant]
     Indication: PRODUCT USED FOR UNKNOWN INDICATION
  4. AZA [Concomitant]
  5. ROACTEMRA [Concomitant]
     Active Substance: TOCILIZUMAB
     Indication: PRODUCT USED FOR UNKNOWN INDICATION
     Dates: start: 201310, end: 201507
  6. AZA [Concomitant]

REACTIONS (2)
  - Death [Fatal]
  - Eczema [Unknown]

NARRATIVE: CASE EVENT DATE: 20201121
